FAERS Safety Report 11052205 (Version 2)
Quarter: 2015Q2

REPORT INFORMATION
  Report Type: Report from Study
  Country: AU (occurrence: AU)
  Receive Date: 20150421
  Receipt Date: 20150506
  Transmission Date: 20150821
  Serious: Yes (Other)
  Sender: FDA-Public Use
  Company Number: PHHY2015AU043337

PATIENT
  Age: 0 Day
  Sex: Female

DRUGS (3)
  1. MYCOPHENOLIC ACID. [Suspect]
     Active Substance: MYCOPHENOLIC ACID
     Dosage: MATERNAL EXPOSURE PRIOR TO PREGNANCY
     Route: 050
     Dates: start: 20130319, end: 20140304
  2. MYCOPHENOLIC ACID. [Suspect]
     Active Substance: MYCOPHENOLIC ACID
     Dosage: MATERNAL EXPOSURE PRIOR TO PREGNANCY
     Route: 050
     Dates: start: 20140305
  3. MYCOPHENOLIC ACID. [Suspect]
     Active Substance: MYCOPHENOLIC ACID
     Indication: PRODUCT USED FOR UNKNOWN INDICATION
     Dosage: MATERNAL EXPOSURE PRIOR TO PREGNANCY
     Route: 050
     Dates: start: 2012, end: 20130319

REACTIONS (2)
  - Maternal exposure before pregnancy [Unknown]
  - Premature baby [Unknown]

NARRATIVE: CASE EVENT DATE: 20150114
